FAERS Safety Report 8337569-0 (Version None)
Quarter: 2012Q2

REPORT INFORMATION
  Report Type: 
  Country: None (occurrence: None)
  Receive Date: 20120504
  Receipt Date: 20120426
  Transmission Date: 20120825
  Serious: Yes (Other)
  Sender: FDA-Public Use
  Company Number: ES-ROCHE-1063623

PATIENT
  Age: 45 Year
  Sex: Male

DRUGS (4)
  1. REBETOL [Suspect]
     Indication: HEPATITIS C
     Route: 048
     Dates: start: 20110307, end: 20110718
  2. PEGASYS [Suspect]
     Indication: HEPATITIS C
     Route: 058
     Dates: start: 20110307, end: 20110718
  3. REBETOL [Suspect]
     Route: 048
     Dates: start: 20110701
  4. PEGASYS [Suspect]
     Route: 058
     Dates: start: 20110701

REACTIONS (6)
  - ANAEMIA [None]
  - FATIGUE [None]
  - INSOMNIA [None]
  - NEUTROPENIA [None]
  - THROMBOCYTOPENIA [None]
  - LEUKOPENIA [None]
